FAERS Safety Report 5062799-3 (Version None)
Quarter: 2006Q3

REPORT INFORMATION
  Report Type: 
  Country: None (occurrence: None)
  Receive Date: 20060724
  Receipt Date: 20060711
  Transmission Date: 20061208
  Serious: Yes (Hospitalization)
  Sender: FDA-Public Use
  Company Number: 2006088154

PATIENT
  Age: 72 Year
  Sex: Male
  Weight: 88 kg

DRUGS (6)
  1. HYDROCORTISONE ACETATE [Suspect]
     Indication: DRUG USE FOR UNKNOWN INDICATION
     Dosage: 40 MG (20 MG, 2 IN 1 D), ORAL
     Route: 048
     Dates: start: 19760701
  2. ASPIRIN [Concomitant]
  3. CLOPIDOGREL BISULFATE [Concomitant]
  4. FLUDROCORTISONE ACETATE [Concomitant]
  5. LIPITOR [Concomitant]
  6. RAMIPRIL [Concomitant]

REACTIONS (4)
  - BLOOD GLUCOSE INCREASED [None]
  - FOOD POISONING [None]
  - MALAISE [None]
  - PYREXIA [None]
